FAERS Safety Report 13523154 (Version 2)
Quarter: 2017Q2

REPORT INFORMATION
  Report Type: Spontaneous
  Country: US (occurrence: US)
  Receive Date: 20170508
  Receipt Date: 20170616
  Transmission Date: 20170830
  Serious: Yes (Other)
  Sender: FDA-Public Use
  Company Number: US-PFIZER INC-2017196976

PATIENT
  Age: 70 Year
  Sex: Female

DRUGS (1)
  1. XELJANZ XR [Suspect]
     Active Substance: TOFACITINIB CITRATE
     Dosage: UNK

REACTIONS (7)
  - Arthralgia [Unknown]
  - Limb discomfort [Unknown]
  - Sleep disorder [Unknown]
  - Joint stiffness [Unknown]
  - Adnexa uteri mass [Unknown]
  - Nausea [Not Recovered/Not Resolved]
  - Fatigue [Unknown]
